FAERS Safety Report 4351448-5 (Version None)
Quarter: 2004Q2

REPORT INFORMATION
  Report Type: 
  Country: None (occurrence: None)
  Receive Date: 20040503
  Receipt Date: 20030207
  Transmission Date: 20050107
  Serious: Yes (Hospitalization)
  Sender: FDA-Public Use
  Company Number: AU-ROCHE-331412

PATIENT
  Age: 29 Year
  Sex: Female
  Weight: 74.3 kg

DRUGS (18)
  1. DACLIZUMAB [Suspect]
     Route: 042
     Dates: start: 20020925, end: 20020925
  2. DACLIZUMAB [Suspect]
     Route: 042
     Dates: start: 20021009, end: 20021119
  3. MYCOPHENOLATE MOFETIL [Suspect]
     Route: 048
     Dates: start: 20020925
  4. MYCOPHENOLATE MOFETIL [Suspect]
     Route: 048
     Dates: start: 20030204, end: 20030705
  5. CELLCEPT [Suspect]
     Route: 065
     Dates: start: 20030904
  6. METHYLPREDNISOLONE [Suspect]
     Dosage: 5-DAY COURSE
     Route: 065
     Dates: start: 20030728
  7. PREDNISONE [Concomitant]
     Dates: start: 20030115
  8. BACTRIM [Concomitant]
     Dates: start: 20020926
  9. LIPITOR [Concomitant]
     Dates: start: 20030425
  10. CALCITRIOL [Concomitant]
     Dates: start: 20020925
  11. NEXIUM [Concomitant]
     Dates: start: 20021011
  12. VALGANCICLOVIR [Concomitant]
     Dates: start: 20030430
  13. TACROLIMUS [Concomitant]
     Dates: start: 20030712
  14. METOPROLOL [Concomitant]
     Dates: start: 20030705
  15. LASIX [Concomitant]
     Dates: start: 20030712, end: 20030731
  16. AMLODIPINE [Concomitant]
     Dates: start: 20030705
  17. RENITEC [Concomitant]
     Dates: start: 20030813
  18. TRIQUILAR [Concomitant]
     Dates: start: 20021115

REACTIONS (6)
  - BLOOD CREATININE INCREASED [None]
  - CYTOMEGALOVIRUS INFECTION [None]
  - FEELING ABNORMAL [None]
  - GLAUCOMA [None]
  - HYPERTENSION [None]
  - KIDNEY TRANSPLANT REJECTION [None]
